FAERS Safety Report 8069791-5 (Version None)
Quarter: 2012Q1

REPORT INFORMATION
  Report Type: 
  Country: None (occurrence: None)
  Receive Date: 20120125
  Receipt Date: 20120117
  Transmission Date: 20120608
  Serious: Yes (Other)
  Sender: FDA-Public Use
  Company Number: GB-PFIZER INC-2012012682

PATIENT
  Sex: Female

DRUGS (1)
  1. XALATAN [Suspect]
     Dosage: UNK
     Dates: start: 20120114

REACTIONS (4)
  - EYE PAIN [None]
  - INTRAOCULAR PRESSURE INCREASED [None]
  - EYE PRURITUS [None]
  - EYE IRRITATION [None]
